FAERS Safety Report 5100760-0 (Version None)
Quarter: 2006Q3

REPORT INFORMATION
  Report Type: 
  Country: None (occurrence: None)
  Receive Date: 20060906
  Receipt Date: 20060822
  Transmission Date: 20061208
  Serious: Yes (Hospitalization)
  Sender: FDA-Public Use
  Company Number: 14677

PATIENT
  Age: 54 Year
  Sex: Female
  Weight: 101 kg

DRUGS (7)
  1. METHYLENE BLUE [Suspect]
     Indication: LOCAL ANAESTHESIA
     Dosage: 500 MG IV
     Route: 042
     Dates: start: 20060629, end: 20060629
  2. ASPIRIN [Concomitant]
  3. CITALOPRAM [Concomitant]
  4. FELODIPINE [Concomitant]
  5. RAMIPRIL [Concomitant]
  6. SIMVASTATIN [Concomitant]
  7. THYROXINE [Concomitant]

REACTIONS (2)
  - CONFUSIONAL STATE [None]
  - HYPOXIA [None]
